FAERS Safety Report 20125661 (Version 7)
Quarter: 2023Q1

REPORT INFORMATION
  Report Type: Spontaneous
  Country: US (occurrence: US)
  Receive Date: 20211129
  Receipt Date: 20230303
  Transmission Date: 20230417
  Serious: No
  Sender: FDA-Public Use
  Company Number: US-PFIZER INC-202100998130

PATIENT
  Age: 69 Year
  Sex: Female
  Weight: 90.72 kg

DRUGS (7)
  1. IBRANCE [Suspect]
     Active Substance: PALBOCICLIB
     Indication: Breast cancer metastatic
     Dosage: (ONE TABLET FOR 21 DAYS)
     Route: 048
     Dates: start: 202011
  2. IBRANCE [Suspect]
     Active Substance: PALBOCICLIB
     Dosage: 125 MG, CYCLIC (ONCE A DAY FOR 3 WEEKS AND ONE WEEK OFF)
  3. IBRANCE [Suspect]
     Active Substance: PALBOCICLIB
     Dosage: 100 MG
     Dates: start: 20210314
  4. IBRANCE [Suspect]
     Active Substance: PALBOCICLIB
     Dosage: 75 MG
     Dates: start: 202103
  5. IBRANCE [Suspect]
     Active Substance: PALBOCICLIB
     Dosage: 100 MG
     Dates: start: 20210412
  6. IBRANCE [Suspect]
     Active Substance: PALBOCICLIB
     Dosage: 75 MG
     Dates: start: 20211012
  7. LETROZOLE [Concomitant]
     Active Substance: LETROZOLE
     Indication: Oestrogen therapy
     Dosage: 2.5 MG, 1X/DAY
     Route: 048

REACTIONS (22)
  - Diarrhoea [Not Recovered/Not Resolved]
  - Flatulence [Unknown]
  - Blister [Unknown]
  - Gingival bleeding [Unknown]
  - Oral mucosal blistering [Unknown]
  - Nausea [Not Recovered/Not Resolved]
  - Skin exfoliation [Unknown]
  - Neuralgia [Unknown]
  - Fatigue [Unknown]
  - Pain in extremity [Unknown]
  - Vomiting [Unknown]
  - Skin fissures [Unknown]
  - Illness [Unknown]
  - Cognitive disorder [Unknown]
  - Poor quality product administered [Unknown]
  - Product temperature excursion issue [Unknown]
  - Intentional product misuse [Unknown]
  - Memory impairment [Not Recovered/Not Resolved]
  - COVID-19 [Unknown]
  - Post-acute COVID-19 syndrome [Unknown]
  - Confusional state [Unknown]
  - Body height decreased [Unknown]

NARRATIVE: CASE EVENT DATE: 20210101
